FAERS Safety Report 13439585 (Version 1)
Quarter: 2017Q2

REPORT INFORMATION
  Report Type: Spontaneous
  Country: VE (occurrence: VE)
  Receive Date: 20170413
  Receipt Date: 20170413
  Transmission Date: 20170830
  Serious: Yes (Other)
  Sender: FDA-Public Use
  Company Number: PHHY2017VE055220

PATIENT
  Sex: Female
  Weight: 65 kg

DRUGS (1)
  1. TYKERB [Suspect]
     Active Substance: LAPATINIB DITOSYLATE
     Indication: METASTASES TO CENTRAL NERVOUS SYSTEM
     Dosage: 4 DF, QD (1000 MG)
     Route: 048
     Dates: start: 20170107

REACTIONS (1)
  - Metastasis [Unknown]
